FAERS Safety Report 12276540 (Version 1)
Quarter: 2016Q2

REPORT INFORMATION
  Report Type: Report from Study
  Country: NL (occurrence: NL)
  Receive Date: 20160418
  Receipt Date: 20160418
  Transmission Date: 20160815
  Serious: Yes (Death, Other)
  Sender: FDA-Public Use
  Company Number: NL-ROCHE-1740062

PATIENT

DRUGS (5)
  1. CYCLOPHOSPHAMIDE. [Suspect]
     Active Substance: CYCLOPHOSPHAMIDE
     Indication: NON-HODGKIN^S LYMPHOMA
     Route: 065
  2. DOXORUBICIN [Suspect]
     Active Substance: DOXORUBICIN
     Indication: NON-HODGKIN^S LYMPHOMA
     Route: 065
  3. PREDNISONE. [Suspect]
     Active Substance: PREDNISONE
     Indication: NON-HODGKIN^S LYMPHOMA
     Route: 065
  4. RITUXIMAB [Suspect]
     Active Substance: RITUXIMAB
     Indication: NON-HODGKIN^S LYMPHOMA
     Route: 065
  5. VINCRISTINE [Suspect]
     Active Substance: VINCRISTINE
     Indication: NON-HODGKIN^S LYMPHOMA
     Route: 065

REACTIONS (15)
  - Large intestinal haemorrhage [Unknown]
  - Ileus [Unknown]
  - Lung infection [Fatal]
  - Gastric haemorrhage [Fatal]
  - Sepsis [Fatal]
  - Infection [Fatal]
  - Leukopenia [Unknown]
  - Mucosal inflammation [Unknown]
  - Anaemia [Unknown]
  - Renal failure [Unknown]
  - Dysphagia [Unknown]
  - General physical health deterioration [Fatal]
  - Thrombocytopenia [Unknown]
  - Atrial flutter [Unknown]
  - Nausea [Unknown]
